FAERS Safety Report 9468647 (Version 3)
Quarter: 2013Q4

REPORT INFORMATION
  Report Type: Report from Study
  Country: US (occurrence: US)
  Receive Date: 20130821
  Receipt Date: 20131018
  Transmission Date: 20140711
  Serious: Yes (Hospitalization, Other)
  Sender: FDA-Public Use
  Company Number: US-BRISTOL-MYERS SQUIBB COMPANY-19131341

PATIENT
  Age: 67 Year
  Sex: Female
  Weight: 54.9 kg

DRUGS (2)
  1. IPILIMUMAB [Suspect]
     Indication: MALIGNANT MELANOMA
     Dosage: LAST DOSE ON 08JUL13.?TOTAL DOSE ADMINISTERED:549 MG.
     Route: 042
     Dates: start: 20130617, end: 20130807
  2. INTRON A [Suspect]
     Indication: MALIGNANT MELANOMA
     Dosage: LAST DOSE ON 10JUL13.?TOTAL DOSE ADMINISTERED:63 MILLION IU.?LAST TWO DOSES OMITTED.
     Route: 058
     Dates: start: 20130617, end: 20130807

REACTIONS (8)
  - Posterior reversible encephalopathy syndrome [Unknown]
  - Metastases to central nervous system [Recovering/Resolving]
  - Encephalitis [Recovering/Resolving]
  - Lung infection [Recovering/Resolving]
  - Hypertension [Recovering/Resolving]
  - Anxiety [Recovering/Resolving]
  - Depression [Recovering/Resolving]
  - Fatigue [Recovering/Resolving]
